FAERS Safety Report 14799733 (Version 1)
Quarter: 2018Q2

REPORT INFORMATION
  Report Type: Spontaneous
  Country: DE (occurrence: DE)
  Receive Date: 20180424
  Receipt Date: 20180424
  Transmission Date: 20180711
  Serious: Yes (Hospitalization)
  Sender: FDA-Public Use
  Company Number: DE-MYLANLABS-2018M1025259

PATIENT
  Age: 56 Year
  Sex: Female

DRUGS (3)
  1. METHOTREXATE. [Suspect]
     Active Substance: METHOTREXATE
     Indication: RHEUMATOID ARTHRITIS
     Dosage: START DATE /MAR/2017
     Route: 065
     Dates: start: 201703
  2. RITUXIMAB. [Suspect]
     Active Substance: RITUXIMAB
     Indication: RHEUMATOID ARTHRITIS
     Dosage: ON 02/JUN/2016 AND 23/JAN/2017, RECEIVED RITUXIMAB INFUSION.
     Route: 042
     Dates: start: 20160602, end: 20160602
  3. RITUXIMAB. [Suspect]
     Active Substance: RITUXIMAB
     Dosage: ON 02/JUN/2016 AND 23/JAN/2017, RECEIVED RITUXIMAB INFUSION.
     Route: 042
     Dates: start: 20170123, end: 20170123

REACTIONS (5)
  - Gastrooesophageal reflux disease [Unknown]
  - Rheumatoid arthritis [Unknown]
  - Alopecia [Unknown]
  - Diarrhoea [Unknown]
  - Gastritis [Unknown]

NARRATIVE: CASE EVENT DATE: 201701
